FAERS Safety Report 22368854 (Version 1)
Quarter: 2023Q2

REPORT INFORMATION
  Report Type: Spontaneous
  Country: US (occurrence: None)
  Receive Date: 20230525
  Receipt Date: 20230525
  Transmission Date: 20230721
  Serious: No
  Sender: FDA-Public Use
  Company Number: None

PATIENT
  Age: 73 Year
  Sex: Male

DRUGS (12)
  1. REPATHA [Suspect]
     Active Substance: EVOLOCUMAB
     Route: 058
     Dates: start: 20221107
  2. ASPIRIN 81MG EC LOW DOSE TABLETS [Concomitant]
  3. CALCIUM 600MG W/D TABLETS G/S [Concomitant]
  4. EZETIMIBE [Concomitant]
     Active Substance: EZETIMIBE
  5. FIBER 625MG TABLETS [Concomitant]
  6. FLUTICASONE ALLERGY NASAL 50MG SP [Concomitant]
  7. MAGNESIUM 400MG SOFTGELS CAPS 60^S [Concomitant]
  8. MULTIPLE VITAMIN TABLETS [Concomitant]
  9. OMEGA-3 100M0MG CAPSULES [Concomitant]
  10. OMEPRAZOLE [Concomitant]
     Active Substance: OMEPRAZOLE
  11. VALSARTAN/HCTZ 160MG/12.5MG TABLETS [Concomitant]
  12. VITAMIN B-COMPLEX+C T/R TABLETS N/B [Concomitant]

REACTIONS (1)
  - Myalgia [None]
